FAERS Safety Report 18217216 (Version 1)
Quarter: 2020Q3

REPORT INFORMATION
  Report Type: Spontaneous
  Country: US (occurrence: US)
  Receive Date: 20200831
  Receipt Date: 20200831
  Transmission Date: 20201103
  Serious: Yes (Hospitalization)
  Sender: FDA-Public Use
  Company Number: None

PATIENT
  Age: 65 Year
  Sex: Male
  Weight: 112.94 kg

DRUGS (1)
  1. AMOXICILLIN/CLAVULANATE (AMOXICILLIN TRIHYDRATE 875MG/CLAVULANATE K 12 [Suspect]
     Active Substance: AMOXICILLIN\CLAVULANATE POTASSIUM
     Indication: INFECTION
     Route: 048
     Dates: start: 20191119, end: 20191126

REACTIONS (9)
  - Cholecystitis [None]
  - Hyperbilirubinaemia [None]
  - Jaundice [None]
  - Splenomegaly [None]
  - Pyrexia [None]
  - Hepatomegaly [None]
  - Blood alkaline phosphatase increased [None]
  - Liver function test increased [None]
  - International normalised ratio increased [None]

NARRATIVE: CASE EVENT DATE: 20191126
